FAERS Safety Report 5399079-2 (Version None)
Quarter: 2007Q3

REPORT INFORMATION
  Report Type: 
  Country: None (occurrence: None)
  Receive Date: 20070727
  Receipt Date: 20060614
  Transmission Date: 20080115
  Serious: No
  Sender: FDA-Public Use
  Company Number: A0608983A

PATIENT
  Age: 68 Year
  Sex: Female

DRUGS (4)
  1. LOTRONEX [Suspect]
     Indication: IRRITABLE BOWEL SYNDROME
     Dosage: 1MG PER DAY
     Route: 048
  2. ADVAIR DISKUS 100/50 [Concomitant]
  3. POLYETHYLENE GLYCOL [Concomitant]
  4. BELLATAL [Concomitant]

REACTIONS (4)
  - ABDOMINAL PAIN UPPER [None]
  - BACK PAIN [None]
  - CONSTIPATION [None]
  - MUSCULOSKELETAL PAIN [None]
